FAERS Safety Report 4563653-3 (Version None)
Quarter: 2005Q1

REPORT INFORMATION
  Report Type: 
  Country: None (occurrence: None)
  Receive Date: 20050124
  Receipt Date: 20050112
  Transmission Date: 20050727
  Serious: Yes (Other)
  Sender: FDA-Public Use
  Company Number: 2005-01-1171

PATIENT
  Age: 50 Year
  Sex: Male

DRUGS (2)
  1. GENTAMICIN [Suspect]
  2. TYLENOL W/ CODEINE NO. 3 [Concomitant]

REACTIONS (5)
  - BALANCE DISORDER [None]
  - DIZZINESS [None]
  - NEPHROPATHY [None]
  - VERTIGO [None]
  - VISUAL DISTURBANCE [None]
